FAERS Safety Report 7772527-6 (Version None)
Quarter: 2011Q3

REPORT INFORMATION
  Report Type: 
  Country: None (occurrence: None)
  Receive Date: 20110922
  Receipt Date: 20110701
  Transmission Date: 20111222
  Serious: No
  Sender: FDA-Public Use
  Company Number: US-ASTRAZENECA-2011SE39710

PATIENT
  Sex: Female

DRUGS (2)
  1. BYETTA [Concomitant]
     Dosage: AC
  2. SEROQUEL XR [Suspect]
     Route: 048

REACTIONS (3)
  - SOMNOLENCE [None]
  - INSOMNIA [None]
  - INCORRECT DOSE ADMINISTERED [None]
